FAERS Safety Report 9585509 (Version 1)
Quarter: 2013Q4

REPORT INFORMATION
  Report Type: Spontaneous
  Country: IN (occurrence: IN)
  Receive Date: 20131003
  Receipt Date: 20131003
  Transmission Date: 20140711
  Serious: Yes (Hospitalization)
  Sender: FDA-Public Use
  Company Number: IN-GLENMARK GENERICS INC.-2013GMK006913

PATIENT
  Age: 22 Year
  Sex: Male
  Weight: 64 kg

DRUGS (1)
  1. MONTELUKAST SODIUM [Suspect]
     Indication: RHINITIS ALLERGIC
     Dosage: 10 MG, QD AFTER FOOD
     Route: 048

REACTIONS (13)
  - Pancreatitis acute [Recovered/Resolved]
  - Abdominal distension [Recovered/Resolved]
  - Abdominal pain [Recovered/Resolved]
  - Vomiting [Recovered/Resolved]
  - Emotional distress [Recovered/Resolved]
  - Skin striae [Recovered/Resolved]
  - Abdominal tenderness [Recovered/Resolved]
  - Abdominal rigidity [Recovered/Resolved]
  - Hypercholesterolaemia [Recovered/Resolved]
  - Fat tissue increased [Recovered/Resolved]
  - Weight increased [Recovered/Resolved]
  - Hypertriglyceridaemia [Recovered/Resolved]
  - Hypocalcaemia [Recovered/Resolved]
